FAERS Safety Report 18677493 (Version 1)
Quarter: 2020Q4

REPORT INFORMATION
  Report Type: Spontaneous
  Country: US (occurrence: US)
  Receive Date: 20201229
  Receipt Date: 20201229
  Transmission Date: 20210114
  Serious: No
  Sender: FDA-Public Use
  Company Number: US-BAUSCH-BL-2020-038977

PATIENT
  Age: 76 Year
  Sex: Male

DRUGS (1)
  1. ALAWAY [Suspect]
     Active Substance: KETOTIFEN FUMARATE
     Indication: EYE PRURITUS
     Dosage: TRIED IN THE PAST
     Route: 047

REACTIONS (5)
  - Therapeutic product effect incomplete [Unknown]
  - Eye irritation [Unknown]
  - Condition aggravated [Unknown]
  - Eye pruritus [Unknown]
  - Therapeutic product effect delayed [Unknown]
